FAERS Safety Report 5286139-X (Version None)
Quarter: 2007Q1

REPORT INFORMATION
  Report Type: 
  Country: None (occurrence: None)
  Receive Date: 20070116
  Receipt Date: 20061108
  Transmission Date: 20070707
  Serious: No
  Sender: FDA-Public Use
  Company Number: 2006SP003963

PATIENT
  Age: 76 Year
  Sex: Female
  Weight: 72.5755 kg

DRUGS (3)
  1. LUNESTA [Suspect]
     Indication: INSOMNIA
     Dosage: 3 MG;1X;ORAL
     Route: 048
     Dates: start: 20061107, end: 20061107
  2. GLUCOPHAGE [Concomitant]
  3. GLYBURIDE [Concomitant]

REACTIONS (2)
  - DYSGEUSIA [None]
  - MIDDLE INSOMNIA [None]
